FAERS Safety Report 5366710-7 (Version None)
Quarter: 2007Q2

REPORT INFORMATION
  Report Type: 
  Country: None (occurrence: None)
  Receive Date: 20070622
  Receipt Date: 20060508
  Transmission Date: 20071010
  Serious: No
  Sender: FDA-Public Use
  Company Number: US-ASTRAZENECA-2006UW08919

PATIENT
  Sex: Female

DRUGS (7)
  1. RHINOCORT [Suspect]
     Route: 045
  2. CLARINEX [Concomitant]
  3. COREG [Concomitant]
  4. LIPITOR [Concomitant]
  5. DOXAZOSIN MESYLATE [Concomitant]
  6. SPIRONOLACTONE [Concomitant]
  7. ASPIRIN [Concomitant]

REACTIONS (2)
  - CANDIDIASIS [None]
  - RASH [None]
